FAERS Safety Report 9451831 (Version 1)
Quarter: 2013Q3

REPORT INFORMATION
  Report Type: Spontaneous
  Country: US (occurrence: US)
  Receive Date: 20130812
  Receipt Date: 20130812
  Transmission Date: 20140515
  Serious: No
  Sender: FDA-Public Use
  Company Number: US-BIOGENIDEC-2013BI072257

PATIENT
  Age: 32 Year
  Sex: Female

DRUGS (1)
  1. TYSABRI [Suspect]
     Indication: MULTIPLE SCLEROSIS
     Route: 042
     Dates: start: 20101011

REACTIONS (6)
  - Photosensitivity reaction [Unknown]
  - Bladder dysfunction [Unknown]
  - Tremor [Unknown]
  - Hemiplegia [Unknown]
  - Seasonal allergy [Unknown]
  - Multiple sclerosis relapse [Not Recovered/Not Resolved]
